FAERS Safety Report 8420220-9 (Version None)
Quarter: 2012Q2

REPORT INFORMATION
  Report Type: 
  Country: None (occurrence: None)
  Receive Date: 20120607
  Receipt Date: 20120528
  Transmission Date: 20120825
  Serious: Yes (Hospitalization)
  Sender: FDA-Public Use
  Company Number: IT-FRI-1000030682

PATIENT
  Sex: Female

DRUGS (5)
  1. ESCITALOPRAM [Suspect]
     Dosage: 28 TABLETS
     Route: 048
     Dates: start: 20120511, end: 20120511
  2. ESCITALOPRAM [Suspect]
     Indication: DEPRESSIVE SYMPTOM
     Route: 048
     Dates: end: 20120510
  3. XANAX [Suspect]
     Indication: DEPRESSIVE SYMPTOM
     Route: 048
     Dates: end: 20120510
  4. LEXOTAN [Suspect]
     Dosage: 20 TABLETS
     Route: 048
     Dates: start: 20120511, end: 20120511
  5. XANAX [Suspect]
     Dosage: 6 TABLETS
     Route: 048
     Dates: start: 20120511, end: 20120511

REACTIONS (4)
  - HYPOTENSION [None]
  - BRADYPHRENIA [None]
  - INTENTIONAL OVERDOSE [None]
  - BRADYKINESIA [None]
